FAERS Safety Report 12047596 (Version 1)
Quarter: 2016Q1

REPORT INFORMATION
  Report Type: Report from Study
  Country: US (occurrence: US)
  Receive Date: 20160208
  Receipt Date: 20160208
  Transmission Date: 20160526
  Serious: Yes (Other)
  Sender: FDA-Public Use
  Company Number: US-ABBVIE-15P-163-1374584-00

PATIENT
  Age: 54 Year
  Sex: Female
  Weight: 106.69 kg

DRUGS (2)
  1. HUMIRA [Suspect]
     Active Substance: ADALIMUMAB
     Indication: PSORIASIS
     Route: 058
     Dates: start: 20140926, end: 201502
  2. HUMIRA [Suspect]
     Active Substance: ADALIMUMAB
     Route: 058
     Dates: start: 201504

REACTIONS (6)
  - Psoriasis [Not Recovered/Not Resolved]
  - Pain in extremity [Not Recovered/Not Resolved]
  - Gastrectomy [Recovered/Resolved]
  - Paraesthesia [Not Recovered/Not Resolved]
  - Psoriasis [Recovered/Resolved]
  - Gastric bypass [Recovered/Resolved]

NARRATIVE: CASE EVENT DATE: 201502
